FAERS Safety Report 6180399 (Version 2)
Quarter: 2015Q3

REPORT INFORMATION
  Report Type: Spontaneous
  Country: SE (occurrence: SE)
  Receive Date: 20061206
  Receipt Date: 20150731
  Transmission Date: 20151125
  Serious: Yes (Hospitalization, Other)
  Sender: FDA-Public Use
  Company Number: SE-GLAXOSMITHKLINE-B0449008A

PATIENT
  Age: 65 Year
  Sex: Female

DRUGS (3)
  1. NEURONTIN [Suspect]
     Active Substance: GABAPENTIN
     Indication: TRIGEMINAL NEURALGIA
     Route: 048
     Dates: start: 20060728, end: 20060728
  2. TROMBYL [Concomitant]
     Active Substance: ASPIRIN
  3. LAMICTAL [Suspect]
     Active Substance: LAMOTRIGINE
     Indication: TRIGEMINAL NEURALGIA
     Route: 048

REACTIONS (9)
  - Dizziness [Unknown]
  - Balance disorder [Unknown]
  - Depressive symptom [Unknown]
  - Nausea [Unknown]
  - Ataxia [Unknown]
  - Feeling abnormal [Unknown]
  - Coordination abnormal [Recovered/Resolved]
  - Overdose [Unknown]
  - Headache [Unknown]

NARRATIVE: CASE EVENT DATE: 200604
